FAERS Safety Report 19845124 (Version 1)
Quarter: 2021Q3

REPORT INFORMATION
  Report Type: Spontaneous
  Country: US (occurrence: US)
  Receive Date: 20210916
  Receipt Date: 20210916
  Transmission Date: 20211014
  Serious: Yes (Death)
  Sender: FDA-Public Use
  Company Number: None

PATIENT
  Age: 82 Year
  Sex: Male

DRUGS (1)
  1. IPRATROPIUM ? ALBUTEROL 0.5?3MG [Suspect]
     Active Substance: ALBUTEROL\IPRATROPIUM
     Indication: EMPHYSEMA
     Dosage: ?          OTHER FREQUENCY:Q6HRS PRN;?
     Route: 055
     Dates: start: 20190117

REACTIONS (8)
  - Essential hypertension [None]
  - Anaemia [None]
  - Blood osmolarity decreased [None]
  - Aortic valve disease [None]
  - Vitamin D deficiency [None]
  - Mitral valve disease [None]
  - Obstructive airways disorder [None]
  - Sleep apnoea syndrome [None]
